FAERS Safety Report 18386755 (Version 1)
Quarter: 2020Q4

REPORT INFORMATION
  Report Type: Spontaneous
  Country: CA (occurrence: CA)
  Receive Date: 20201015
  Receipt Date: 20201015
  Transmission Date: 20210114
  Serious: Yes (Other)
  Sender: FDA-Public Use
  Company Number: CA-GLAXOSMITHKLINE-CA2020202434

PATIENT

DRUGS (1)
  1. VOLTAREN EMULGEL JOINT PAIN EXTRA STRENGTH (2.32%) [Suspect]
     Active Substance: DICLOFENAC DIETHYLAMINE
     Indication: PAIN
     Dosage: UNK

REACTIONS (1)
  - Renal injury [Unknown]
